FAERS Safety Report 22884328 (Version 3)
Quarter: 2023Q4

REPORT INFORMATION
  Report Type: Report from Study
  Country: US (occurrence: US)
  Receive Date: 20230830
  Receipt Date: 20231010
  Transmission Date: 20240109
  Serious: Yes (Other)
  Sender: FDA-Public Use
  Company Number: US-BAUSCH-BL-2023-013035

PATIENT
  Age: 68 Year
  Sex: Female

DRUGS (1)
  1. TRULANCE [Suspect]
     Active Substance: PLECANATIDE
     Indication: Product used for unknown indication
     Route: 065

REACTIONS (5)
  - Aortic surgery [Unknown]
  - Fibromyalgia [Unknown]
  - Migraine [Unknown]
  - Gait inability [Unknown]
  - Inability to afford medication [Unknown]
